FAERS Safety Report 4714866-9 (Version None)
Quarter: 2005Q3

REPORT INFORMATION
  Report Type: 
  Country: None (occurrence: None)
  Receive Date: 20050713
  Receipt Date: 20050630
  Transmission Date: 20060218
  Serious: Yes (Hospitalization, Other)
  Sender: FDA-Public Use
  Company Number: HQWYE952601JUL05

PATIENT
  Age: 93 Year
  Sex: Female

DRUGS (15)
  1. EUPANTOL (PANTOPRAZOLE, INJECTION) [Suspect]
     Indication: DUODENAL ULCER
     Dosage: 40 MG 1X PER 1 DAY INTRAVENOUS
     Route: 042
     Dates: start: 20050129, end: 20050130
  2. EUPANTOL (PANTOPRAZOLE, INJECTION) [Suspect]
     Indication: DUODENAL ULCER
     Dosage: 40 MG 1X PER 1 DAY INTRAVENOUS
     Route: 042
     Dates: start: 20050204, end: 20050214
  3. CLAMOXYL (AMOXICILLIN SODIUM, ) [Suspect]
     Dosage: 3 G 1X PER 1 DAY ORAL
     Route: 048
     Dates: start: 20050208, end: 20050214
  4. NEXIUM [Suspect]
     Dosage: 40 + 80 + 40 + 10 MG, 1X PER 1 DAY ORAL
     Route: 048
     Dates: start: 20050131, end: 20050203
  5. NEXIUM [Suspect]
     Dosage: 40 + 80 + 40 + 10 MG, 1X PER 1 DAY ORAL
     Route: 048
     Dates: start: 20050208, end: 20050209
  6. NEXIUM [Suspect]
     Dosage: 40 + 80 + 40 + 10 MG, 1X PER 1 DAY ORAL
     Route: 048
     Dates: start: 20050210, end: 20050214
  7. NEXIUM [Suspect]
     Dosage: 40 + 80 + 40 + 10 MG, 1X PER 1 DAY ORAL
     Route: 048
     Dates: start: 20050201
  8. OLMETEC (OLMESARTAN MEDOXOMIL, ) [Suspect]
     Dosage: 20 MG 1X PER 1 DAY ORAL
     Route: 048
     Dates: end: 20050214
  9. OFLOXACIN [Concomitant]
  10. CLARITHROMYCIN [Concomitant]
  11. LEVOTHYROXINE SODIUM [Concomitant]
  12. ACETAMINOPHEN [Concomitant]
  13. FERROUS SULFATE TAB [Concomitant]
  14. ACETAMINOPHEN W/ PROPOXYPHENE HCL [Concomitant]
  15. XANAX [Concomitant]

REACTIONS (7)
  - ANAEMIA [None]
  - CONDITION AGGRAVATED [None]
  - FEMUR FRACTURE [None]
  - GENERAL PHYSICAL HEALTH DETERIORATION [None]
  - INFLAMMATION [None]
  - RENAL FAILURE ACUTE [None]
  - URINARY TRACT INFECTION [None]
